FAERS Safety Report 8800069 (Version 2)
Quarter: 2015Q2

REPORT INFORMATION
  Report Type: Report from Study
  Country: US (occurrence: US)
  Receive Date: 20120921
  Receipt Date: 20150629
  Transmission Date: 20150821
  Serious: Yes (Death)
  Sender: FDA-Public Use
  Company Number: US-ROCHE-1103756

PATIENT

DRUGS (7)
  1. AVASTIN [Suspect]
     Active Substance: BEVACIZUMAB
     Indication: NON-SMALL CELL LUNG CANCER
     Route: 065
     Dates: start: 20091125
  2. CARBOPLATIN. [Concomitant]
     Active Substance: CARBOPLATIN
  3. TARCEVA [Suspect]
     Active Substance: ERLOTINIB HYDROCHLORIDE
     Indication: BRONCHIOLOALVEOLAR CARCINOMA
  4. FOLIC ACID. [Concomitant]
     Active Substance: FOLIC ACID
  5. TARCEVA [Suspect]
     Active Substance: ERLOTINIB HYDROCHLORIDE
     Indication: ADENOCARCINOMA
     Route: 065
  6. ALIMTA [Concomitant]
     Active Substance: PEMETREXED DISODIUM
  7. DEXAMETHASONE. [Concomitant]
     Active Substance: DEXAMETHASONE

REACTIONS (4)
  - Cough [Recovering/Resolving]
  - Death [Fatal]
  - Therapeutic response decreased [Unknown]
  - Disease progression [Unknown]
